FAERS Safety Report 6941421-2 (Version None)
Quarter: 2010Q3

REPORT INFORMATION
  Report Type: 
  Country: None (occurrence: None)
  Receive Date: 20100825
  Receipt Date: 20100819
  Transmission Date: 20110219
  Serious: Yes (Hospitalization, Disabling)
  Sender: FDA-Public Use
  Company Number: GB-CEPHALON-2010003624

PATIENT
  Sex: Female

DRUGS (6)
  1. PROVIGIL [Suspect]
     Route: 048
  2. PROVIGIL [Suspect]
     Route: 048
  3. FLUOXETINE [Concomitant]
  4. ACETAMINOPHEN AND CODEINE PHOSPHATE [Concomitant]
  5. FUROSEMIDE [Concomitant]
  6. CARBIMAZOLE [Concomitant]

REACTIONS (6)
  - ACCIDENTAL OVERDOSE [None]
  - AGITATION [None]
  - DRUG DIVERSION [None]
  - DYSKINESIA [None]
  - EXTRAPYRAMIDAL DISORDER [None]
  - POISONING DELIBERATE [None]
